FAERS Safety Report 13147979 (Version 3)
Quarter: 2018Q1

REPORT INFORMATION
  Report Type: Report from Study
  Country: US (occurrence: US)
  Receive Date: 20170124
  Receipt Date: 20180118
  Transmission Date: 20180508
  Serious: No
  Sender: FDA-Public Use
  Company Number: US-AMGEN-USASL2016157084

PATIENT
  Age: 85 Year
  Sex: Female

DRUGS (2)
  1. REPATHA [Suspect]
     Active Substance: EVOLOCUMAB
     Indication: HYPERCHOLESTEROLAEMIA
     Dosage: 420 MG, Q2WK (PUSHTRONEX)
     Route: 065
     Dates: start: 20161031
  2. REPATHA [Suspect]
     Active Substance: EVOLOCUMAB
     Indication: BLOOD CHOLESTEROL INCREASED

REACTIONS (7)
  - Rhinorrhoea [Recovering/Resolving]
  - Feeling abnormal [Recovering/Resolving]
  - Joint swelling [Unknown]
  - Pain [Recovering/Resolving]
  - Nasal dryness [Unknown]
  - Peripheral swelling [Unknown]
  - Malaise [Recovering/Resolving]

NARRATIVE: CASE EVENT DATE: 2016
